FAERS Safety Report 5676399-5 (Version None)
Quarter: 2008Q1

REPORT INFORMATION
  Report Type: 
  Country: None (occurrence: None)
  Receive Date: 20080321
  Receipt Date: 20080312
  Transmission Date: 20080703
  Serious: Yes (Hospitalization, Other)
  Sender: FDA-Public Use
  Company Number: US-PFIZER INC-2008023611

PATIENT
  Sex: Male

DRUGS (1)
  1. CHANTIX [Suspect]

REACTIONS (3)
  - HEADACHE [None]
  - NAUSEA [None]
  - SURGERY [None]
